FAERS Safety Report 25798028 (Version 1)
Quarter: 2025Q3

REPORT INFORMATION
  Report Type: Spontaneous
  Country: CN (occurrence: CN)
  Receive Date: 20250912
  Receipt Date: 20250912
  Transmission Date: 20251021
  Serious: Yes (Other)
  Sender: MERCK SHARP & DOHME LLC
  Company Number: CN-009507513-2328450

PATIENT
  Age: 70 Year
  Sex: Male

DRUGS (11)
  1. PEMBROLIZUMAB [Suspect]
     Active Substance: PEMBROLIZUMAB
     Indication: Lung squamous cell carcinoma stage IV
     Route: 041
     Dates: start: 20210210, end: 20210210
  2. PEMBROLIZUMAB [Suspect]
     Active Substance: PEMBROLIZUMAB
     Indication: Lung squamous cell carcinoma stage IV
     Route: 041
     Dates: start: 20210304, end: 20210304
  3. PEMBROLIZUMAB [Suspect]
     Active Substance: PEMBROLIZUMAB
     Indication: Lung squamous cell carcinoma stage IV
     Route: 041
     Dates: start: 20210326, end: 20210326
  4. PEMBROLIZUMAB [Suspect]
     Active Substance: PEMBROLIZUMAB
     Indication: Lung squamous cell carcinoma stage IV
     Route: 041
     Dates: start: 20210529
  5. PACLITAXEL [Suspect]
     Active Substance: PACLITAXEL
     Indication: Lung squamous cell carcinoma stage IV
     Route: 041
     Dates: start: 20210210, end: 20210210
  6. PACLITAXEL [Suspect]
     Active Substance: PACLITAXEL
     Indication: Lung squamous cell carcinoma stage IV
     Route: 041
     Dates: start: 20210304, end: 20210304
  7. PACLITAXEL [Suspect]
     Active Substance: PACLITAXEL
     Indication: Lung squamous cell carcinoma stage IV
     Route: 041
     Dates: start: 20210326, end: 20210326
  8. CARBOPLATIN [Suspect]
     Active Substance: CARBOPLATIN
     Indication: Lung squamous cell carcinoma stage IV
     Route: 041
     Dates: start: 20210210, end: 20210210
  9. CARBOPLATIN [Suspect]
     Active Substance: CARBOPLATIN
     Indication: Lung squamous cell carcinoma stage IV
     Route: 041
     Dates: start: 20210304, end: 20210304
  10. CARBOPLATIN [Suspect]
     Active Substance: CARBOPLATIN
     Indication: Lung squamous cell carcinoma stage IV
     Route: 041
     Dates: start: 20210326, end: 20210326
  11. protamine zinc recombinant human insulin 16 IU subcutaneous injection [Concomitant]
     Indication: Type 2 diabetes mellitus

REACTIONS (5)
  - Cerebral radiation injury [Unknown]
  - Therapy partial responder [Unknown]
  - Therapy partial responder [Unknown]
  - Inappropriate schedule of product administration [Unknown]
  - Inappropriate schedule of product administration [Unknown]

NARRATIVE: CASE EVENT DATE: 20210304
